FAERS Safety Report 10681442 (Version 1)
Quarter: 2014Q4

REPORT INFORMATION
  Report Type: Spontaneous
  Country: IT (occurrence: IT)
  Receive Date: 20141230
  Receipt Date: 20141230
  Transmission Date: 20150529
  Serious: Yes (Other)
  Sender: FDA-Public Use
  Company Number: IT-ACCORD-027846

PATIENT
  Age: 76 Year
  Sex: Female

DRUGS (1)
  1. DOCETAXEL. [Suspect]
     Active Substance: DOCETAXEL
     Indication: INVASIVE DUCTAL BREAST CARCINOMA
     Dosage: DOCETAXEL I.V. 75 MG/M^2 EVERY 21 DAYS.?FEC-T SCHEDULE
     Route: 042

REACTIONS (4)
  - Febrile neutropenia [Unknown]
  - Nausea [Unknown]
  - Abdominal pain [Unknown]
  - Drug intolerance [Unknown]
